FAERS Safety Report 16892781 (Version 1)
Quarter: 2019Q4

REPORT INFORMATION
  Report Type: Spontaneous
  Country: DE (occurrence: DE)
  Receive Date: 20191007
  Receipt Date: 20191007
  Transmission Date: 20200122
  Serious: Yes (Other)
  Sender: FDA-Public Use
  Company Number: DE-B.I. PHARMACEUTICALS,INC./RIDGEFIELD-2019-12-105806

PATIENT
  Age: 85 Year
  Sex: Female

DRUGS (1)
  1. MICARDIS HCT [Suspect]
     Active Substance: HYDROCHLOROTHIAZIDE\TELMISARTAN
     Indication: HYPERTENSION
     Dosage: DAILY DOSE: 1 DF DOSAGE FORM EVERY DAYS, 40/12,5
     Route: 048

REACTIONS (1)
  - Basal cell carcinoma [Unknown]

NARRATIVE: CASE EVENT DATE: 201903
